FAERS Safety Report 4881418-X (Version None)
Quarter: 2005Q4

REPORT INFORMATION
  Report Type: 
  Country: None (occurrence: None)
  Receive Date: 20051201
  Receipt Date: 20050726
  Transmission Date: 20060501
  Serious: No
  Sender: FDA-Public Use
  Company Number: 2005PV000638

PATIENT
  Age: 64 Year
  Sex: Female

DRUGS (11)
  1. BYETTA [Suspect]
     Dosage: 5 MCG;BID;SC
     Route: 058
     Dates: start: 20050701
  2. CLORAZEPATE DIPOTASSIUM [Concomitant]
  3. METFORMIN HCL [Concomitant]
  4. AVANDIA [Concomitant]
  5. TOPAMAX [Concomitant]
  6. CYMBALTA [Concomitant]
  7. FOLIC ACID [Concomitant]
  8. FLEXERIL [Concomitant]
  9. LIPITOR [Concomitant]
  10. LANTUS [Concomitant]
  11. ZETIA [Concomitant]

REACTIONS (2)
  - INJECTION SITE BRUISING [None]
  - INJECTION SITE PAIN [None]
